FAERS Safety Report 5813565-X (Version None)
Quarter: 2008Q3

REPORT INFORMATION
  Report Type: 
  Country: None (occurrence: None)
  Receive Date: 20080717
  Receipt Date: 20080707
  Transmission Date: 20090109
  Serious: Yes (Other)
  Sender: FDA-Public Use
  Company Number: GB-ABBOTT-08P-167-0461685-00

PATIENT
  Sex: Female

DRUGS (9)
  1. HUMIRA [Suspect]
     Indication: CROHN'S DISEASE
     Route: 058
     Dates: start: 20080101
  2. GLICLAZIDE [Concomitant]
     Indication: DIABETES MELLITUS
     Route: 048
  3. NITRAZAPAM [Concomitant]
     Indication: INSOMNIA
     Route: 048
  4. NITRAZAPAM [Concomitant]
     Indication: PAIN
  5. TRAMADOL HCL [Concomitant]
     Indication: INSOMNIA
     Route: 048
  6. TRAMADOL HCL [Concomitant]
     Indication: PAIN
  7. AMITRIPTYLINE HCL [Concomitant]
     Indication: INSOMNIA
     Dosage: 2 X 25 MG, ONCE NIGHTLY
  8. AMITRIPTYLINE HCL [Concomitant]
     Indication: PAIN
  9. LATANOPROST [Concomitant]
     Indication: DRUG USE FOR UNKNOWN INDICATION
     Dosage: DAILY

REACTIONS (4)
  - ANXIETY [None]
  - DEPRESSION [None]
  - PANIC ATTACK [None]
  - PSYCHIATRIC SYMPTOM [None]
